FAERS Safety Report 8809048 (Version 1)
Quarter: 2012Q4

REPORT INFORMATION
  Report Type: 
  Country: HU (occurrence: HU)
  Receive Date: 20120926
  Receipt Date: 20120926
  Transmission Date: 20130627
  Serious: Yes (Other)
  Sender: FDA-Public Use
  Company Number: HU-PFIZER INC-2012237221

PATIENT
  Age: 74 Year
  Sex: Female
  Weight: 78 kg

DRUGS (14)
  1. LYRICA [Suspect]
     Indication: NEURALGIA
     Dosage: 75 mg, 2x/day
     Dates: start: 201202
  2. LYRICA [Suspect]
     Dosage: 150 mg, 3x/day
     Dates: end: 201205
  3. BETALOC ZOK ^ASTRA^ [Concomitant]
     Dosage: started 5-6 years ago
  4. CORVATON FORTE [Concomitant]
     Dosage: started 6 years ago
  5. ASPIRIN PROTECT [Concomitant]
     Dosage: started 3 years ago
  6. LIPANOR [Concomitant]
     Dosage: started 6 years ago
  7. MONO MACK [Concomitant]
     Dosage: started 6 yeasr ago
  8. NORVASC [Concomitant]
     Dosage: started 6 years ago
  9. XANAX [Concomitant]
     Dosage: started 8 years ago
  10. PANTOPRAZOLE SODIUM [Concomitant]
     Dosage: started 2 years ago
  11. METFORMIN HYDROCHLORIDE [Concomitant]
     Dosage: started 2 years ago
  12. SYNCUMAR [Concomitant]
     Dosage: started 8 years ago
  13. THIOGAMMA [Concomitant]
     Dosage: started 3 years ago
  14. CLEXANE [Concomitant]
     Dosage: occasionally

REACTIONS (3)
  - Brain neoplasm [Not Recovered/Not Resolved]
  - Dizziness [Not Recovered/Not Resolved]
  - Asthenia [Not Recovered/Not Resolved]
